FAERS Safety Report 23501905 (Version 1)
Quarter: 2024Q1

REPORT INFORMATION
  Report Type: Spontaneous
  Country: US (occurrence: US)
  Receive Date: 20240208
  Receipt Date: 20240208
  Transmission Date: 20240410
  Serious: No
  Sender: FDA-Public Use
  Company Number: US-PFIZER INC-PV202300074474

PATIENT
  Age: 86 Year
  Sex: Female
  Weight: 66.22 kg

DRUGS (1)
  1. IBRANCE [Suspect]
     Active Substance: PALBOCICLIB
     Indication: Breast cancer female
     Dosage: TAKES 1 TABLET A DAY FOR 21 DAYS AND OFF FOR 7

REACTIONS (1)
  - Neoplasm progression [Unknown]
